FAERS Safety Report 7332600-3 (Version None)
Quarter: 2011Q1

REPORT INFORMATION
  Report Type: 
  Country: None (occurrence: None)
  Receive Date: 20110304
  Receipt Date: 20110208
  Transmission Date: 20110831
  Serious: No
  Sender: FDA-Public Use
  Company Number: US-B.I. PHARMACEUTICALS,INC./RIDGEFIELD-2011-BP-05097BP

PATIENT
  Age: 66 Year
  Sex: Female

DRUGS (1)
  1. ZANTAC 75 [Suspect]
     Indication: GASTRECTOMY
     Dosage: 112.5 MG
     Route: 048

REACTIONS (1)
  - METAL POISONING [None]
